FAERS Safety Report 5276677-8 (Version None)
Quarter: 2007Q1

REPORT INFORMATION
  Report Type: 
  Country: None (occurrence: None)
  Receive Date: 20070327
  Receipt Date: 20070314
  Transmission Date: 20070707
  Serious: Yes (Hospitalization)
  Sender: FDA-Public Use
  Company Number: PHRM2007FR01065

PATIENT
  Age: 54 Year
  Sex: Male
  Weight: 73 kg

DRUGS (7)
  1. TRILEPTAL [Suspect]
     Indication: FACIAL NEURALGIA
     Dosage: UNK, UNK
     Route: 048
     Dates: start: 20061225, end: 20070101
  2. TRILEPTAL [Suspect]
     Route: 048
     Dates: start: 20061225, end: 20070101
  3. PREVISCAN [Suspect]
     Indication: DEEP VEIN THROMBOSIS
     Dosage: 20 MG, QD
     Route: 048
     Dates: start: 20061229, end: 20070105
  4. LOVENOX [Concomitant]
     Route: 058
     Dates: start: 20061229, end: 20070102
  5. ZELITREX                                /DEN/ [Concomitant]
     Dates: start: 20061225, end: 20061229
  6. TIMOPTIC [Concomitant]
  7. RIVOTRIL [Concomitant]
     Route: 048
     Dates: start: 20061229

REACTIONS (7)
  - ALANINE AMINOTRANSFERASE INCREASED [None]
  - ASPARTATE AMINOTRANSFERASE INCREASED [None]
  - BLOOD ALKALINE PHOSPHATASE INCREASED [None]
  - C-REACTIVE PROTEIN INCREASED [None]
  - GAMMA-GLUTAMYLTRANSFERASE INCREASED [None]
  - HEPATIC NEOPLASM [None]
  - HEPATITIS [None]
